FAERS Safety Report 7759643-X (Version None)
Quarter: 2011Q3

REPORT INFORMATION
  Report Type: 
  Country: None (occurrence: None)
  Receive Date: 20110919
  Receipt Date: 20110914
  Transmission Date: 20111222
  Serious: Yes (Hospitalization, Other)
  Sender: FDA-Public Use
  Company Number: JP-ROCHE-802769

PATIENT
  Age: 70 Year
  Sex: Male

DRUGS (5)
  1. EFUDEX [Concomitant]
     Dosage: DRIP
     Route: 042
  2. LEUCOVORIN CALCIUM [Concomitant]
     Route: 041
  3. AVASTIN [Suspect]
     Indication: COLON CANCER RECURRENT
     Route: 041
     Dates: start: 20090101
  4. EFUDEX [Concomitant]
     Dosage: BOLUS
     Route: 042
  5. OXALIPLATIN [Concomitant]
     Route: 041

REACTIONS (3)
  - HYPERTENSION [None]
  - THROMBOTIC MICROANGIOPATHY [None]
  - NEPHROTIC SYNDROME [None]
